FAERS Safety Report 10463331 (Version 2)
Quarter: 2014Q3

REPORT INFORMATION
  Report Type: Report from Study
  Country: CO (occurrence: CO)
  Receive Date: 20140919
  Receipt Date: 20140919
  Transmission Date: 20150326
  Serious: Yes (Hospitalization)
  Sender: FDA-Public Use
  Company Number: CO-BRISTOL-MYERS SQUIBB COMPANY-21233192

PATIENT
  Age: 56 Year
  Sex: Female

DRUGS (1)
  1. BYDUREON [Suspect]
     Active Substance: EXENATIDE
     Indication: TYPE 2 DIABETES MELLITUS
     Route: 058
     Dates: start: 20140621, end: 20140629

REACTIONS (9)
  - Pain in extremity [Recovering/Resolving]
  - Flushing [Not Recovered/Not Resolved]
  - Cheilitis [Recovering/Resolving]
  - Hypoaesthesia oral [Recovering/Resolving]
  - Pruritus generalised [Not Recovered/Not Resolved]
  - Rash [Not Recovered/Not Resolved]
  - Injection site inflammation [Recovering/Resolving]
  - Injection site erythema [Recovering/Resolving]
  - Dyspnoea [Recovering/Resolving]

NARRATIVE: CASE EVENT DATE: 20140629
